FAERS Safety Report 7069781-5 (Version None)
Quarter: 2010Q4

REPORT INFORMATION
  Report Type: 
  Country: None (occurrence: None)
  Receive Date: 20101028
  Receipt Date: 20100723
  Transmission Date: 20110411
  Serious: No
  Sender: FDA-Public Use
  Company Number: US-WYE-H15679310

PATIENT
  Age: 74 Year
  Sex: Female
  Weight: 99.88 kg

DRUGS (3)
  1. ADVIL [Suspect]
     Indication: MUSCULOSKELETAL PAIN
     Route: 048
  2. CYCLOBENZAPRINE [Concomitant]
  3. GABAPENTIN [Concomitant]

REACTIONS (3)
  - ABDOMINAL DISCOMFORT [None]
  - NAUSEA [None]
  - PRODUCT COMMINGLING [None]
